FAERS Safety Report 7182042-9 (Version None)
Quarter: 2010Q4

REPORT INFORMATION
  Report Type: 
  Country: None (occurrence: None)
  Receive Date: 20101221
  Receipt Date: 20100505
  Transmission Date: 20110411
  Serious: No
  Sender: FDA-Public Use
  Company Number: US-AMGEN-KDL410785

PATIENT

DRUGS (1)
  1. ENBREL [Suspect]
     Indication: RHEUMATOID ARTHRITIS
     Dosage: 25 MG, 2 TIMES/WK
     Route: 058
     Dates: start: 20030212, end: 20100405

REACTIONS (10)
  - DIABETES MELLITUS [None]
  - INJECTION SITE NODULE [None]
  - INJECTION SITE PAIN [None]
  - MIGRAINE [None]
  - PAIN IN EXTREMITY [None]
  - PROLAPSE REPAIR [None]
  - RESPIRATORY TRACT INFECTION [None]
  - THERAPEUTIC RESPONSE DECREASED [None]
  - URINARY TRACT INFECTION [None]
  - WEIGHT DECREASED [None]
